FAERS Safety Report 4637591-1 (Version None)
Quarter: 2005Q2

REPORT INFORMATION
  Report Type: 
  Country: None (occurrence: None)
  Receive Date: 20050325
  Receipt Date: 20050104
  Transmission Date: 20051028
  Serious: No
  Sender: FDA-Public Use
  Company Number: USA041184760

PATIENT
  Age: 75 Year
  Sex: Female
  Weight: 54 kg

DRUGS (7)
  1. FORTEO [Suspect]
     Indication: OSTEOPOROSIS
     Dosage: 20 UG DAY
     Dates: start: 20040701
  2. CALCIUM CARBONATE [Concomitant]
  3. MIACALCIN [Concomitant]
  4. APO-METOPROLOL (METOPROLOL TARTRATE) [Concomitant]
  5. LEVOXYL [Concomitant]
  6. ALTACE [Concomitant]
  7. HYDROCODONE BITARTRATE [Concomitant]

REACTIONS (4)
  - ARTHRALGIA [None]
  - BONE DENSITY DECREASED [None]
  - DIZZINESS [None]
  - INTERVERTEBRAL DISC COMPRESSION [None]
